FAERS Safety Report 12321416 (Version 3)
Quarter: 2020Q3

REPORT INFORMATION
  Report Type: Report from Study
  Country: JP (occurrence: JP)
  Receive Date: 20160502
  Receipt Date: 20170223
  Transmission Date: 20201104
  Serious: Yes (Other)
  Sender: FDA-Public Use
  Company Number: JP-ROCHE-1487167

PATIENT
  Age: 67 Year
  Sex: Female
  Weight: 46 kg

DRUGS (19)
  1. ALECTINIB. [Suspect]
     Active Substance: ALECTINIB
     Dosage: THE ALTERNATE?DAY REGIMEN DURING 300MGX TWICE/DAY
     Route: 048
     Dates: start: 20141118, end: 20141127
  2. ALECTINIB. [Suspect]
     Active Substance: ALECTINIB
     Route: 048
     Dates: start: 20141204, end: 20150629
  3. PACLITAXEL. [Suspect]
     Active Substance: PACLITAXEL
     Indication: LUNG ADENOCARCINOMA
     Dosage: DOSAGE UNCERTAIN
     Route: 041
     Dates: start: 20140805, end: 20140805
  4. RESTAMIN [Concomitant]
     Active Substance: DIPHENHYDRAMINE
     Route: 048
  5. ALECTINIB. [Suspect]
     Active Substance: ALECTINIB
     Dosage: THE ALTERNATE?DAY REGIMEN DURING 300MGX TWICE/DAY.
     Route: 048
     Dates: start: 20141105, end: 20141113
  6. ASPARA POTASSIUM [Concomitant]
     Active Substance: POTASSIUM ASPARTATE
     Route: 048
     Dates: end: 20150526
  7. ALECTINIB. [Suspect]
     Active Substance: ALECTINIB
     Route: 048
     Dates: start: 20141025, end: 20141030
  8. PACLITAXEL. [Suspect]
     Active Substance: PACLITAXEL
     Route: 041
     Dates: start: 20140826, end: 20140826
  9. PACLITAXEL. [Suspect]
     Active Substance: PACLITAXEL
     Route: 041
     Dates: start: 20140918, end: 20140918
  10. CARBOPLATIN. [Suspect]
     Active Substance: CARBOPLATIN
     Dosage: DOSAGE UNCERTAIN
     Route: 041
     Dates: start: 20140918
  11. ALECTINIB. [Suspect]
     Active Substance: ALECTINIB
     Route: 048
     Dates: start: 20141020, end: 20141023
  12. PACLITAXEL. [Suspect]
     Active Substance: PACLITAXEL
     Route: 041
     Dates: start: 20141002, end: 20141002
  13. LENDORMIN [Concomitant]
     Active Substance: BROTIZOLAM
     Route: 048
     Dates: end: 20160607
  14. ALECTINIB. [Suspect]
     Active Substance: ALECTINIB
     Indication: LUNG ADENOCARCINOMA
     Route: 048
     Dates: start: 20141009, end: 20141014
  15. ALECTINIB. [Suspect]
     Active Substance: ALECTINIB
     Dosage: MOST RECENT DOSE ON 21/FEB/2016
     Route: 048
     Dates: start: 20150630
  16. CARBOPLATIN. [Suspect]
     Active Substance: CARBOPLATIN
     Indication: LUNG ADENOCARCINOMA
     Dosage: DOSAGE UNCERTAIN
     Route: 041
     Dates: start: 20140805, end: 20140805
  17. PACLITAXEL. [Suspect]
     Active Substance: PACLITAXEL
     Route: 041
     Dates: start: 20140812, end: 20140812
  18. WARFARIN [Concomitant]
     Active Substance: WARFARIN
     Route: 048
     Dates: end: 20160607
  19. GLYCYRON (AMMONIUM GLYCYRRHIZATE/GLYCINE/METHIONINE) [Concomitant]
     Route: 048
     Dates: end: 20150526

REACTIONS (1)
  - Neutrophil count decreased [Recovered/Resolved]

NARRATIVE: CASE EVENT DATE: 20141014
